FAERS Safety Report 8247237-1 (Version None)
Quarter: 2012Q1

REPORT INFORMATION
  Report Type: 
  Country: None (occurrence: None)
  Receive Date: 20120329
  Receipt Date: 20120329
  Transmission Date: 20120608
  Serious: No
  Sender: FDA-Public Use
  Company Number: None

PATIENT
  Age: 57 Year
  Sex: Male

DRUGS (1)
  1. AUGMENTIN '125' [Suspect]
     Dates: start: 20100219, end: 20100228

REACTIONS (5)
  - LIVER DISORDER [None]
  - HEPATIC ENZYME INCREASED [None]
  - HEPATIC NECROSIS [None]
  - LYMPHOCYTE MORPHOLOGY ABNORMAL [None]
  - HAEMANGIOMA OF LIVER [None]
